FAERS Safety Report 16300869 (Version 2)
Quarter: 2019Q2

REPORT INFORMATION
  Report Type: Report from Study
  Country: CA (occurrence: CA)
  Receive Date: 20190510
  Receipt Date: 20190514
  Transmission Date: 20190711
  Serious: Yes (Hospitalization)
  Sender: FDA-Public Use
  Company Number: CA-JNJFOC-20190510264

PATIENT
  Age: 24 Year
  Sex: Male
  Weight: 57 kg

DRUGS (2)
  1. SIMPONI [Suspect]
     Active Substance: GOLIMUMAB
     Indication: COLITIS ULCERATIVE
     Dosage: STRENGTH = 100 MG
     Route: 058
     Dates: start: 20190323, end: 20190409
  2. PREDNISONE. [Concomitant]
     Active Substance: PREDNISONE
     Dosage: STRENGTH = 5 MG
     Route: 048
     Dates: start: 20190505

REACTIONS (2)
  - Drug ineffective [Unknown]
  - Colitis ulcerative [Unknown]

NARRATIVE: CASE EVENT DATE: 2019
